FAERS Safety Report 16850972 (Version 3)
Quarter: 2020Q3

REPORT INFORMATION
  Report Type: Spontaneous
  Country: US (occurrence: US)
  Receive Date: 20190925
  Receipt Date: 20200831
  Transmission Date: 20201102
  Serious: Yes (Other)
  Sender: FDA-Public Use
  Company Number: US-GILEAD-2019-0429328

PATIENT
  Sex: Male
  Weight: 78.01 kg

DRUGS (47)
  1. COMPLERA [Suspect]
     Active Substance: EMTRICITABINE\RILPIVIRINE HYDROCHLORIDE\TENOFOVIR DISOPROXIL FUMARATE
     Indication: HIV INFECTION
     Dosage: UNK
     Route: 048
     Dates: start: 2011, end: 2018
  2. GENVOYA [Concomitant]
     Active Substance: COBICISTAT\ELVITEGRAVIR\EMTRICITABINE\TENOFOVIR ALAFENAMIDE FUMARATE
  3. AMOXICILLIN. [Concomitant]
     Active Substance: AMOXICILLIN
  4. FLUCONAZOLE. [Concomitant]
     Active Substance: FLUCONAZOLE
  5. GABAPENTIN. [Concomitant]
     Active Substance: GABAPENTIN
  6. METOCLOPRAMIDE. [Concomitant]
     Active Substance: METOCLOPRAMIDE
  7. IBUPROFEN. [Concomitant]
     Active Substance: IBUPROFEN
  8. NICOTROL [Concomitant]
     Active Substance: NICOTINE
  9. NYSTATIN. [Concomitant]
     Active Substance: NYSTATIN
  10. PNEUMOVAX 23 [Concomitant]
     Active Substance: PNEUMOCOCCAL VACCINE, POLYVALENT 23
  11. PROMETHAZINE [Concomitant]
     Active Substance: PROMETHAZINE HYDROCHLORIDE
  12. AZITHROMYCIN ANHYDROUS. [Concomitant]
     Active Substance: AZITHROMYCIN ANHYDROUS
  13. CALCITROL [CALCITRIOL] [Concomitant]
     Active Substance: CALCITRIOL
  14. LORAZEPAM. [Concomitant]
     Active Substance: LORAZEPAM
  15. PERCOCET [Concomitant]
     Active Substance: ACETAMINOPHEN\OXYCODONE HYDROCHLORIDE
  16. BACTRIM [Concomitant]
     Active Substance: SULFAMETHOXAZOLE\TRIMETHOPRIM
  17. TOBRAMYCIN. [Concomitant]
     Active Substance: TOBRAMYCIN
  18. VITAMIN D NOS [Concomitant]
     Active Substance: VITAMIN D NOS
  19. ENDOCET [Concomitant]
     Active Substance: ACETAMINOPHEN\OXYCODONE HYDROCHLORIDE
  20. COBICISTAT [Concomitant]
     Active Substance: COBICISTAT
  21. AMOX+AC CLAV ACV [Concomitant]
  22. LISINOPRIL. [Concomitant]
     Active Substance: LISINOPRIL
  23. PREDNISONE. [Concomitant]
     Active Substance: PREDNISONE
  24. VIAGRA CONNECT [Concomitant]
     Active Substance: SILDENAFIL CITRATE
  25. CEFDINIR. [Concomitant]
     Active Substance: CEFDINIR
  26. CHLORHEXIDINE [Concomitant]
     Active Substance: CHLORHEXIDINE
  27. EMTRICITABINE [Concomitant]
     Active Substance: EMTRICITABINE
  28. METOPROLOL. [Concomitant]
     Active Substance: METOPROLOL
  29. MIDODRINE [Concomitant]
     Active Substance: MIDODRINE
  30. ZOFRAN [Concomitant]
     Active Substance: ONDANSETRON HYDROCHLORIDE
  31. SHINGRIX [Concomitant]
     Active Substance: RECOMBINANT VARICELLA ZOSTER VIRUS (VZV) GLYCOPROTEIN E
  32. CIALIS [Concomitant]
     Active Substance: TADALAFIL
  33. TRAMADOL. [Concomitant]
     Active Substance: TRAMADOL
  34. TRUVADA [Suspect]
     Active Substance: EMTRICITABINE\TENOFOVIR DISOPROXIL FUMARATE
     Indication: HIV INFECTION
     Dosage: UNK
     Route: 048
     Dates: start: 2005, end: 2011
  35. CIPROFLOXACIN. [Concomitant]
     Active Substance: CIPROFLOXACIN
  36. FLUZONE [FLUCONAZOLE] [Concomitant]
     Active Substance: FLUCONAZOLE
  37. OXYCODONE [Concomitant]
     Active Substance: OXYCODONE
  38. PREVIDENT [Concomitant]
     Active Substance: SODIUM FLUORIDE
  39. COMPLERA [Suspect]
     Active Substance: EMTRICITABINE\RILPIVIRINE HYDROCHLORIDE\TENOFOVIR DISOPROXIL FUMARATE
     Dosage: UNK
     Route: 048
     Dates: start: 20141222, end: 20171010
  40. FENTANYL. [Concomitant]
     Active Substance: FENTANYL
  41. ENOXAPARIN [Concomitant]
     Active Substance: ENOXAPARIN
  42. FLULAVAL [Concomitant]
  43. PROAIR BRONQUIAL [Concomitant]
  44. MELOXICAM. [Concomitant]
     Active Substance: MELOXICAM
  45. ERGOCALCIFEROL. [Concomitant]
     Active Substance: ERGOCALCIFEROL
  46. PENICILLIN NOS [Concomitant]
     Active Substance: PENICILLIN
  47. SUPREP BOWEL PREP [Concomitant]
     Active Substance: MAGNESIUM SULFATE\POTASSIUM SULFATE\SODIUM SULFATE

REACTIONS (15)
  - Osteoporosis [Not Recovered/Not Resolved]
  - Intervertebral disc degeneration [Unknown]
  - Loss of personal independence in daily activities [Not Recovered/Not Resolved]
  - Acute kidney injury [Not Recovered/Not Resolved]
  - Lethargy [Not Recovered/Not Resolved]
  - Anxiety [Not Recovered/Not Resolved]
  - Spinal fracture [Unknown]
  - Emotional distress [Not Recovered/Not Resolved]
  - Decreased activity [Not Recovered/Not Resolved]
  - Depression [Not Recovered/Not Resolved]
  - Anhedonia [Not Recovered/Not Resolved]
  - Economic problem [Not Recovered/Not Resolved]
  - Pain [Not Recovered/Not Resolved]
  - Quality of life decreased [Not Recovered/Not Resolved]
  - Impaired work ability [Not Recovered/Not Resolved]

NARRATIVE: CASE EVENT DATE: 2015
